FAERS Safety Report 17136251 (Version 1)
Quarter: 2019Q4

REPORT INFORMATION
  Report Type: Spontaneous
  Country: US (occurrence: US)
  Receive Date: 20191210
  Receipt Date: 20191210
  Transmission Date: 20200122
  Serious: No
  Sender: FDA-Public Use
  Company Number: US-BAUSCH-BL-2019-061996

PATIENT
  Sex: Female

DRUGS (1)
  1. FLUOROURACIL CREAM [Suspect]
     Active Substance: FLUOROURACIL
     Indication: ACTINIC KERATOSIS
     Dosage: THIN LAYER ON AFFECTED AREA OF FACE; USED FOR 3-5 WEEKS
     Route: 061
     Dates: start: 2019, end: 2019

REACTIONS (2)
  - Application site exfoliation [Unknown]
  - Application site scar [Not Recovered/Not Resolved]

NARRATIVE: CASE EVENT DATE: 2019
